FAERS Safety Report 10405620 (Version 1)
Quarter: 2014Q3

REPORT INFORMATION
  Report Type: Other
  Country: GB (occurrence: GB)
  Receive Date: 20140825
  Receipt Date: 20140825
  Transmission Date: 20150326
  Serious: Yes (Hospitalization, Other)
  Sender: FDA-Public Use
  Company Number: GB-TARO PHARMACEUTICALS U.S.A., INC-2014SUN01904

PATIENT
  Age: 86 Year
  Sex: Female
  Weight: 48.6 kg

DRUGS (7)
  1. LETROZOLE. [Concomitant]
     Active Substance: LETROZOLE
  2. THIAMINE [Concomitant]
     Active Substance: THIAMINE
  3. WARFARIN [Suspect]
     Active Substance: WARFARIN
     Indication: ATRIAL FIBRILLATION
     Dosage: VARIABLE ACCORDING TO INR
     Route: 048
     Dates: end: 20140703
  4. VITAMIN B COMPLEX STRONG [Concomitant]
  5. DIGOXIN. [Suspect]
     Active Substance: DIGOXIN
     Indication: ATRIAL FIBRILLATION
     Dosage: 125 TO 250 MCG
     Route: 048
     Dates: start: 200701, end: 20140703
  6. FLUOXETINE [Concomitant]
     Active Substance: FLUOXETINE\FLUOXETINE HYDROCHLORIDE
     Dosage: 20 MG, 1 DOSE
  7. SIMVASTATIN. [Concomitant]
     Active Substance: SIMVASTATIN
     Dosage: TAKEN AT NIGHT

REACTIONS (7)
  - International normalised ratio increased [Recovered/Resolved]
  - Toxicity to various agents [Recovered/Resolved]
  - Ascites [Unknown]
  - Dehydration [Unknown]
  - Drug prescribing error [Unknown]
  - Fall [None]
  - Renal failure acute [Unknown]

NARRATIVE: CASE EVENT DATE: 20140703
